FAERS Safety Report 17509028 (Version 1)
Quarter: 2020Q1

REPORT INFORMATION
  Report Type: Spontaneous
  Country: US (occurrence: US)
  Receive Date: 20200306
  Receipt Date: 20200306
  Transmission Date: 20200409
  Serious: No
  Sender: FDA-Public Use
  Company Number: US-GLAXOSMITHKLINE-US2020AMR039063

PATIENT
  Sex: Female
  Weight: 42.63 kg

DRUGS (1)
  1. BENLYSTA [Suspect]
     Active Substance: BELIMUMAB
     Indication: PRODUCT USED FOR UNKNOWN INDICATION
     Dosage: UNK
     Route: 042
     Dates: start: 2015

REACTIONS (5)
  - Feeling abnormal [Unknown]
  - Gait inability [Unknown]
  - Oral mucosal blistering [Unknown]
  - Oral pain [Unknown]
  - Underweight [Unknown]
